FAERS Safety Report 4759497-X (Version None)
Quarter: 2005Q3

REPORT INFORMATION
  Report Type: 
  Country: None (occurrence: None)
  Receive Date: 20050826
  Receipt Date: 20050623
  Transmission Date: 20060218
  Serious: No
  Sender: FDA-Public Use
  Company Number: 215584

PATIENT
  Age: 42 Year
  Sex: Male
  Weight: 107 kg

DRUGS (1)
  1. RAPTIVA [Suspect]
     Indication: PSORIASIS
     Dosage: 1.1 ML,1/WEEK, SUBCUTANEOUS
     Route: 058
     Dates: end: 20050602

REACTIONS (1)
  - MYALGIA [None]
